FAERS Safety Report 7176655-8 (Version None)
Quarter: 2010Q4

REPORT INFORMATION
  Report Type: 
  Country: None (occurrence: None)
  Receive Date: 20101220
  Receipt Date: 20101209
  Transmission Date: 20110411
  Serious: Yes (Life-Threatening)
  Sender: FDA-Public Use
  Company Number: FI-SANOFI-AVENTIS-2010SA070438

PATIENT
  Age: 71 Year
  Sex: Female

DRUGS (12)
  1. OXALIPLATIN [Suspect]
     Route: 042
     Dates: start: 20091217, end: 20091217
  2. OXALIPLATIN [Suspect]
     Route: 042
     Dates: start: 20100924, end: 20100924
  3. AVASTIN [Suspect]
     Route: 042
     Dates: start: 20091217, end: 20091217
  4. AVASTIN [Suspect]
     Route: 042
     Dates: start: 20100924, end: 20100924
  5. XELODA [Suspect]
     Route: 048
     Dates: start: 20091217
  6. XELODA [Suspect]
     Route: 048
     Dates: start: 20100924
  7. PANADOL [Concomitant]
  8. TRAMAL [Concomitant]
  9. GRANISETRON HCL [Concomitant]
  10. PRIMPERAN TAB [Concomitant]
  11. ZOPINOX [Concomitant]
  12. IMOVANE [Concomitant]

REACTIONS (3)
  - CONFUSIONAL STATE [None]
  - MEMORY IMPAIRMENT [None]
  - PROGRESSIVE MULTIFOCAL LEUKOENCEPHALOPATHY [None]
